FAERS Safety Report 7773660-5 (Version None)
Quarter: 2011Q3

REPORT INFORMATION
  Report Type: 
  Country: None (occurrence: None)
  Receive Date: 20110923
  Receipt Date: 20110912
  Transmission Date: 20111222
  Serious: Yes (Hospitalization)
  Sender: FDA-Public Use
  Company Number: FR-BRISTOL-MYERS SQUIBB COMPANY-16088114

PATIENT
  Age: 9 Year
  Sex: Female
  Weight: 30 kg

DRUGS (4)
  1. NEXIUM [Concomitant]
  2. LYSODREN [Suspect]
     Indication: ADRENOCORTICAL CARCINOMA
     Dates: start: 20100713, end: 20110811
  3. HYDROCORTISONE [Concomitant]
  4. FLUDROCORTISONE ACETATE [Concomitant]

REACTIONS (11)
  - ANAEMIA [None]
  - ATAXIA [None]
  - HYPERCHOLESTEROLAEMIA [None]
  - MELANODERMIA [None]
  - WEIGHT DECREASED [None]
  - TREMOR [None]
  - HYPOTHYROIDISM [None]
  - MEMORY IMPAIRMENT [None]
  - ASTHENIA [None]
  - DECREASED APPETITE [None]
  - HYPERTRIGLYCERIDAEMIA [None]
